FAERS Safety Report 13197350 (Version 1)
Quarter: 2017Q1

REPORT INFORMATION
  Report Type: Report from Study
  Country: US (occurrence: US)
  Receive Date: 20170208
  Receipt Date: 20170208
  Transmission Date: 20170428
  Serious: Yes (Other)
  Sender: FDA-Public Use
  Company Number: US-TAKEDA-2017MPI000413

PATIENT
  Age: 63 Year
  Sex: Male
  Weight: 81 kg

DRUGS (4)
  1. CYTARABINE. [Suspect]
     Active Substance: CYTARABINE
     Indication: ACUTE MYELOID LEUKAEMIA
     Dosage: 1880 MG, UNK
     Route: 042
     Dates: start: 20170103, end: 20170108
  2. IXAZOMIB [Suspect]
     Active Substance: IXAZOMIB
     Indication: ACUTE MYELOID LEUKAEMIA
     Dosage: 1.0 MG, UNK
     Route: 048
     Dates: start: 20170103, end: 20170113
  3. ETOPOSIDE. [Suspect]
     Active Substance: ETOPOSIDE
     Indication: ACUTE MYELOID LEUKAEMIA
     Dosage: 150.4 MG, UNK
     Route: 042
     Dates: start: 20170103, end: 20170108
  4. MITOXANTRONE [Suspect]
     Active Substance: MITOXANTRONE HYDROCHLORIDE
     Indication: ACUTE MYELOID LEUKAEMIA
     Dosage: 11.28 MG, UNK
     Route: 042
     Dates: start: 20170103

REACTIONS (1)
  - Haemorrhage intracranial [Recovering/Resolving]

NARRATIVE: CASE EVENT DATE: 20170113
